FAERS Safety Report 25101507 (Version 2)
Quarter: 2025Q1

REPORT INFORMATION
  Report Type: Spontaneous
  Country: US (occurrence: US)
  Receive Date: 20250320
  Receipt Date: 20250325
  Transmission Date: 20250409
  Serious: No
  Sender: PFIZER
  Company Number: US-PFIZER INC-202500059730

PATIENT
  Age: 56 Year
  Sex: Female
  Weight: 158.76 kg

DRUGS (1)
  1. GENOTROPIN [Suspect]
     Active Substance: SOMATROPIN
     Dosage: 2 MG, DAILY
     Dates: start: 202503

REACTIONS (8)
  - Product design issue [Unknown]
  - Device use issue [Unknown]
  - Device leakage [Unknown]
  - Device failure [Unknown]
  - Device breakage [Unknown]
  - Liquid product physical issue [Unknown]
  - Device difficult to use [Unknown]
  - Drug dose omission by device [Unknown]

NARRATIVE: CASE EVENT DATE: 20250301
